FAERS Safety Report 23318468 (Version 1)
Quarter: 2023Q4

REPORT INFORMATION
  Report Type: Spontaneous
  Country: SG (occurrence: SG)
  Receive Date: 20231220
  Receipt Date: 20231220
  Transmission Date: 20240109
  Serious: Yes (Death)
  Sender: FDA-Public Use
  Company Number: SG-AMGEN-SGPSP2023225525

PATIENT

DRUGS (1)
  1. ETELCALCETIDE [Suspect]
     Active Substance: ETELCALCETIDE
     Indication: Hyperparathyroidism secondary
     Dosage: 5 MILLIGRAM THREE TIMES IN WEEK FOR EIGHT DAYS
     Route: 065

REACTIONS (12)
  - Death [Fatal]
  - Asthenia [Unknown]
  - Drug intolerance [Unknown]
  - Dyspnoea [Unknown]
  - Bone pain [Unknown]
  - Headache [Unknown]
  - Hypersensitivity [Unknown]
  - Therapy non-responder [Unknown]
  - Blood parathyroid hormone decreased [Unknown]
  - Overdose [Unknown]
  - Underdose [Unknown]
  - Hypocalcaemia [Unknown]
